FAERS Safety Report 18087746 (Version 5)
Quarter: 2022Q4

REPORT INFORMATION
  Report Type: Report from Study
  Country: DE (occurrence: DE)
  Receive Date: 20200729
  Receipt Date: 20221011
  Transmission Date: 20230113
  Serious: No
  Sender: FDA-Public Use
  Company Number: DE-SHIRE-DE201738166

PATIENT
  Age: 56 Year
  Sex: Male

DRUGS (9)
  1. TEDUGLUTIDE [Suspect]
     Active Substance: TEDUGLUTIDE
     Indication: Short-bowel syndrome
     Dosage: 3.890 MILLIGRAM, QD
     Route: 042
     Dates: start: 20141119
  2. TEDUGLUTIDE [Suspect]
     Active Substance: TEDUGLUTIDE
     Indication: Short-bowel syndrome
     Dosage: 3.890 MILLIGRAM, QD
     Route: 042
     Dates: start: 20141119
  3. TEDUGLUTIDE [Suspect]
     Active Substance: TEDUGLUTIDE
     Indication: Short-bowel syndrome
     Dosage: 3.890 MILLIGRAM, QD
     Route: 042
     Dates: start: 20141119
  4. TEDUGLUTIDE [Suspect]
     Active Substance: TEDUGLUTIDE
     Indication: Short-bowel syndrome
     Dosage: 3.890 MILLIGRAM, QD
     Route: 042
     Dates: start: 20141119
  5. PROPOFOL [Concomitant]
     Active Substance: PROPOFOL
     Indication: Anaesthesia
     Dosage: 550 MILLIGRAM, SINGLE
     Route: 042
     Dates: start: 20210729, end: 20210729
  6. PROPOFOL [Concomitant]
     Active Substance: PROPOFOL
     Dosage: 560 MILLIGRAM, SINGLE
     Route: 042
     Dates: start: 20220804, end: 20220804
  7. ELECTROLYTES NOS\MINERALS [Concomitant]
     Active Substance: ELECTROLYTES NOS\MINERALS
     Indication: Trace element deficiency
     Dosage: 1 DOSAGE FORM, QD
     Route: 042
  8. CERNEVIT [Concomitant]
     Active Substance: VITAMINS
     Indication: Vitamin supplementation
     Dosage: 1 DOSAGE FORM, QD
     Route: 042
  9. TEDUGLUTIDE [Concomitant]
     Active Substance: TEDUGLUTIDE
     Indication: Short-bowel syndrome
     Dosage: 2 DOSAGE FORM, QD
     Route: 042

REACTIONS (2)
  - Gastric polyps [Recovered/Resolved]
  - Duodenal polyp [Recovered/Resolved]

NARRATIVE: CASE EVENT DATE: 20170321
